FAERS Safety Report 8244473-5 (Version None)
Quarter: 2012Q1

REPORT INFORMATION
  Report Type: 
  Country: None (occurrence: None)
  Receive Date: 20120329
  Receipt Date: 20120321
  Transmission Date: 20120608
  Serious: Yes (Hospitalization)
  Sender: FDA-Public Use
  Company Number: TH-JNJFOC-20120311668

PATIENT
  Age: 46 Year
  Sex: Female

DRUGS (2)
  1. UNASYN [Suspect]
     Indication: INFECTION
     Route: 048
     Dates: start: 20120313, end: 20120315
  2. ULTRACET [Suspect]
     Indication: PAIN
     Route: 048
     Dates: start: 20120313, end: 20120315

REACTIONS (3)
  - CHEST DISCOMFORT [None]
  - RASH GENERALISED [None]
  - VOMITING [None]
